FAERS Safety Report 9456769 (Version 1)
Quarter: 2013Q3

REPORT INFORMATION
  Report Type: Spontaneous
  Country: GB (occurrence: GB)
  Receive Date: 20130813
  Receipt Date: 20130813
  Transmission Date: 20140515
  Serious: Yes (Hospitalization)
  Sender: FDA-Public Use
  Company Number: GB-WATSON-2013-14213

PATIENT
  Sex: 0

DRUGS (1)
  1. DESMOPRESSIN [Suspect]
     Indication: NOCTURIA
     Dosage: UNK, UNKNOWN
     Route: 048

REACTIONS (1)
  - Hyponatraemia [Unknown]
